FAERS Safety Report 9250785 (Version 1)
Quarter: 2013Q1

REPORT INFORMATION
  Report Type: Spontaneous
  Country: US (occurrence: None)
  Receive Date: 20130305
  Receipt Date: 20130305
  Transmission Date: 20140127
  Serious: Yes (Disabling)
  Sender: FDA-Public Use
  Company Number: 163-21880-12082482

PATIENT
  Age: 71 Year
  Sex: Male

DRUGS (3)
  1. REVLIMID [Suspect]
     Indication: PLASMA CELL MYELOMA
     Route: 048
     Dates: start: 200812, end: 2009
  2. DEXAMETHASONE  (DEXAMETHASONE) [Suspect]
  3. BORTEZOMIB (BORTEZOMIB) [Concomitant]

REACTIONS (2)
  - Plasma cell myeloma [None]
  - No therapeutic response [None]
